FAERS Safety Report 18432495 (Version 3)
Quarter: 2020Q4

REPORT INFORMATION
  Report Type: Spontaneous
  Country: US (occurrence: US)
  Receive Date: 20201027
  Receipt Date: 20201216
  Transmission Date: 20210114
  Serious: Yes (Hospitalization)
  Sender: FDA-Public Use
  Company Number: US-CELLTRION INC.-2020US029651

PATIENT

DRUGS (2)
  1. INFLECTRA [Suspect]
     Active Substance: INFLIXIMAB-DYYB
     Indication: COLITIS ULCERATIVE
     Dosage: UNKNOWN TO CALLER
     Route: 065
     Dates: start: 20201019
  2. AZATHIOPRINE. [Concomitant]
     Active Substance: AZATHIOPRINE
     Indication: COLITIS ULCERATIVE
     Dosage: 1.5 DOSAGE FORM, DAILY
     Dates: start: 2020

REACTIONS (5)
  - Poor quality sleep [Unknown]
  - Colitis ulcerative [Recovering/Resolving]
  - Lethargy [Unknown]
  - Eating disorder [Unknown]
  - Anaemia [Unknown]

NARRATIVE: CASE EVENT DATE: 2020
